FAERS Safety Report 5523364-4 (Version None)
Quarter: 2007Q4

REPORT INFORMATION
  Report Type: 
  Country: None (occurrence: None)
  Receive Date: 20071121
  Receipt Date: 20071116
  Transmission Date: 20080405
  Serious: Yes (Hospitalization)
  Sender: FDA-Public Use
  Company Number: B0495150A

PATIENT
  Age: 28 Year
  Sex: Female

DRUGS (1)
  1. AUGMENTIN '125' [Suspect]
     Route: 042
     Dates: start: 20071019, end: 20071020

REACTIONS (3)
  - DRUG INEFFECTIVE [None]
  - PHARMACEUTICAL PRODUCT COMPLAINT [None]
  - WOUND INFECTION [None]
